FAERS Safety Report 7860501-0 (Version None)
Quarter: 2011Q4

REPORT INFORMATION
  Report Type: 
  Country: None (occurrence: None)
  Receive Date: 20111027
  Receipt Date: 20111025
  Transmission Date: 20120403
  Serious: Yes (Death)
  Sender: FDA-Public Use
  Company Number: AU-B.I. PHARMACEUTICALS,INC./RIDGEFIELD-2011-AU-01845AU

PATIENT
  Sex: Male

DRUGS (16)
  1. DIGOXIN [Concomitant]
     Dosage: 250 MCG
  2. ENDEP [Concomitant]
     Dosage: 50 MG
  3. FUROSEMIDE [Concomitant]
     Dosage: 40 MG
  4. GAVISCON [Concomitant]
  5. MINAX [Concomitant]
     Dosage: 100 MG
  6. NITROLINGUAL PUMPSPRAY [Concomitant]
  7. PRADAXA [Suspect]
     Indication: ATRIAL FIBRILLATION
     Dosage: 300 MG
     Dates: start: 20110714, end: 20111014
  8. NOVOLOG MIX 70/30 [Concomitant]
  9. PERINDOPRIL ERBUMINE [Concomitant]
     Dosage: 10 MG
  10. OXYCODONE HCL [Concomitant]
     Dosage: 20 MG
  11. FORMET [Concomitant]
     Dosage: 3 G
  12. OXYCONTIN SR [Concomitant]
     Dosage: 400 MG
  13. VYTORIN [Concomitant]
     Dosage: 10/40
  14. PANAMAX [Concomitant]
  15. DIGOXIN [Concomitant]
     Dosage: 62.5 MG
  16. EXFORGE [Concomitant]

REACTIONS (1)
  - MYOCARDIAL INFARCTION [None]
